FAERS Safety Report 8435421-3 (Version None)
Quarter: 2012Q2

REPORT INFORMATION
  Report Type: 
  Country: None (occurrence: None)
  Receive Date: 20120614
  Receipt Date: 20120605
  Transmission Date: 20120825
  Serious: Yes (Other)
  Sender: FDA-Public Use
  Company Number: JP-VERTEX PHARMACEUTICALS INC.-AE-2012-004898

PATIENT
  Age: 59 Year
  Sex: Female

DRUGS (8)
  1. PURSENNID [Concomitant]
     Route: 048
     Dates: start: 20120118
  2. PEGINTERFERON ALFA-2B [Concomitant]
     Indication: HEPATITIS C
     Route: 051
     Dates: start: 20120118
  3. LOXONIN [Concomitant]
     Indication: MUSCULOSKELETAL PAIN
     Route: 061
     Dates: end: 20120122
  4. FAMOTIDINE [Concomitant]
     Route: 048
     Dates: start: 20120120
  5. SELBEX [Concomitant]
     Route: 048
     Dates: start: 20120206
  6. TELAVIC (TELAPREVIR) [Suspect]
     Indication: HEPATITIS C
     Route: 048
     Dates: start: 20120118, end: 20120409
  7. RIBAVIRIN [Concomitant]
     Indication: HEPATITIS C
     Route: 048
     Dates: start: 20120118
  8. ALLEGRA [Concomitant]
     Route: 048
     Dates: start: 20120213

REACTIONS (1)
  - PANCYTOPENIA [None]
